FAERS Safety Report 10666425 (Version 1)
Quarter: 2014Q4

REPORT INFORMATION
  Report Type: Spontaneous
  Country: US (occurrence: US)
  Receive Date: 20141220
  Receipt Date: 20141220
  Transmission Date: 20150529
  Serious: No
  Sender: FDA-Public Use
  Company Number: US-BAUSCH-SYM-2014-19918

PATIENT
  Sex: Female

DRUGS (1)
  1. XENAZINE [Suspect]
     Active Substance: TETRABENAZINE
     Indication: HUNTINGTON^S DISEASE
     Dosage: 1 TABLET AM, HALF TABLET AT NOON AND AT NIGHT
     Route: 048
     Dates: start: 20140305

REACTIONS (4)
  - Memory impairment [Unknown]
  - Tremor [Unknown]
  - Confusional state [Unknown]
  - Medication error [Unknown]
